FAERS Safety Report 23411871 (Version 1)
Quarter: 2024Q1

REPORT INFORMATION
  Report Type: Spontaneous
  Country: US (occurrence: US)
  Receive Date: 20240117
  Receipt Date: 20240117
  Transmission Date: 20240410
  Serious: No
  Sender: FDA-Public Use
  Company Number: US-SK LIFE SCIENCE, INC-SKPVG-2023-000878

PATIENT

DRUGS (5)
  1. XCOPRI [Suspect]
     Active Substance: CENOBAMATE
     Indication: Partial seizures
     Dosage: UNK
     Route: 048
     Dates: start: 20230503
  2. XCOPRI [Suspect]
     Active Substance: CENOBAMATE
     Dosage: 350 MILLIGRAM, QD
     Route: 048
     Dates: end: 20230727
  3. AMLODIPINE [Concomitant]
     Active Substance: AMLODIPINE BESYLATE
     Indication: Product used for unknown indication
     Dosage: 10 MILLIGRAM, QD
     Route: 065
  4. GABAPENTIN [Concomitant]
     Active Substance: GABAPENTIN
     Indication: Product used for unknown indication
     Dosage: 300MG, 1 IN THE MORNING, 1 AT NOON, 2 AT THE EVENING
     Route: 065
  5. OXCARBAZEPINE [Concomitant]
     Active Substance: OXCARBAZEPINE
     Indication: Product used for unknown indication
     Dosage: 150 MILLIGRAM, TID
     Route: 065

REACTIONS (1)
  - Product dose omission issue [Not Recovered/Not Resolved]

NARRATIVE: CASE EVENT DATE: 20230728
